FAERS Safety Report 10240067 (Version 1)
Quarter: 2014Q2

REPORT INFORMATION
  Report Type: Spontaneous
  Country: US (occurrence: US)
  Receive Date: 20140617
  Receipt Date: 20140617
  Transmission Date: 20141212
  Serious: No
  Sender: FDA-Public Use
  Company Number: 2014SP002227

PATIENT
  Sex: Male

DRUGS (7)
  1. DOXYCYCLINE [Suspect]
     Indication: PRODUCT USED FOR UNKNOWN INDICATION
  2. TESTOSTERONE [Concomitant]
     Route: 062
     Dates: start: 20071025
  3. TRAMADOL HYDROCHLORIDE [Concomitant]
     Indication: MYALGIA
     Route: 048
     Dates: start: 20081103
  4. TRAMADOL HYDROCHLORIDE [Concomitant]
     Indication: MYALGIA
     Route: 048
     Dates: start: 20140206
  5. SILDENAFIL CITRATE [Concomitant]
     Route: 048
     Dates: start: 20080314
  6. SILDENAFIL CITRATE [Concomitant]
     Route: 048
     Dates: start: 20140206
  7. ALPRAZOLAM [Concomitant]
     Indication: ANXIETY
     Route: 048
     Dates: start: 20080408

REACTIONS (1)
  - Drug hypersensitivity [Unknown]
